FAERS Safety Report 10003781 (Version 1)
Quarter: 2014Q1

REPORT INFORMATION
  Report Type: Spontaneous
  Country: US (occurrence: US)
  Receive Date: 20140312
  Receipt Date: 20140312
  Transmission Date: 20141002
  Serious: No
  Sender: FDA-Public Use
  Company Number: US-ABBVIE-14P-163-1203571-00

PATIENT
  Sex: Female
  Weight: 68.1 kg

DRUGS (1)
  1. DEPAKOTE [Suspect]
     Indication: HEADACHE
     Dates: start: 20140211, end: 20140211

REACTIONS (5)
  - Faeces pale [Recovered/Resolved]
  - Headache [Recovered/Resolved]
  - Feeling jittery [Recovered/Resolved]
  - Heart rate increased [Recovered/Resolved]
  - Insomnia [Recovered/Resolved]
